FAERS Safety Report 22322013 (Version 1)
Quarter: 2023Q2

REPORT INFORMATION
  Report Type: Spontaneous
  Country: US (occurrence: US)
  Receive Date: 20230516
  Receipt Date: 20230516
  Transmission Date: 20230721
  Serious: No
  Sender: FDA-Public Use
  Company Number: US-PHARMAESSENTIA CORPORATION-US-2023-PEC-001224

PATIENT

DRUGS (2)
  1. BESREMI [Suspect]
     Active Substance: ROPEGINTERFERON ALFA-2B-NJFT
     Indication: Essential thrombocythaemia
     Dosage: 50 MCG, Q2W
     Route: 058
  2. BESREMI [Suspect]
     Active Substance: ROPEGINTERFERON ALFA-2B-NJFT
     Dosage: 350 MCG, Q2W
     Route: 058

REACTIONS (8)
  - Full blood count abnormal [Not Recovered/Not Resolved]
  - Off label use [Unknown]
  - Product storage error [Unknown]
  - Platelet count increased [Not Recovered/Not Resolved]
  - Therapeutic product effect incomplete [Unknown]
  - Product distribution issue [Unknown]
  - Abdominal pain upper [Unknown]
  - Pruritus [Not Recovered/Not Resolved]

NARRATIVE: CASE EVENT DATE: 20230401
